FAERS Safety Report 23518076 (Version 2)
Quarter: 2024Q2

REPORT INFORMATION
  Report Type: Spontaneous
  Country: US (occurrence: US)
  Receive Date: 20240213
  Receipt Date: 20240423
  Transmission Date: 20240716
  Serious: No
  Sender: FDA-Public Use
  Company Number: US-MYLANLABS-2024M1010886

PATIENT
  Sex: Female
  Weight: 56.25 kg

DRUGS (2)
  1. TYRVAYA [Suspect]
     Active Substance: VARENICLINE TARTRATE
     Indication: Dry eye
     Dosage: UNK, BID(ONE SPRAY TO EACH NOSTRIL TWICE DAILY)
     Route: 045
     Dates: start: 20240127
  2. TYRVAYA [Suspect]
     Active Substance: VARENICLINE TARTRATE
     Indication: Meibomian gland dysfunction

REACTIONS (3)
  - Cough [Unknown]
  - Sneezing [Unknown]
  - Device use error [Unknown]
